FAERS Safety Report 7336182-1 (Version None)
Quarter: 2011Q1

REPORT INFORMATION
  Report Type: 
  Country: None (occurrence: None)
  Receive Date: 20110307
  Receipt Date: 20110224
  Transmission Date: 20110831
  Serious: Yes (Hospitalization)
  Sender: FDA-Public Use
  Company Number: US-BAXTER-2011BH003563

PATIENT
  Age: 65 Year
  Sex: Male

DRUGS (2)
  1. DIANEAL [Suspect]
     Indication: RENAL FAILURE CHRONIC
     Route: 033
  2. DIANEAL [Suspect]
     Indication: RENAL FAILURE CHRONIC
     Route: 033

REACTIONS (11)
  - ANAEMIA [None]
  - DEHYDRATION [None]
  - GASTROENTERITIS VIRAL [None]
  - HEART RATE IRREGULAR [None]
  - POST PROCEDURAL COMPLICATION [None]
  - VOMITING [None]
  - PYREXIA [None]
  - DIARRHOEA [None]
  - ASTHENIA [None]
  - NAUSEA [None]
  - DYSPNOEA [None]
